FAERS Safety Report 7820710-3 (Version None)
Quarter: 2011Q4

REPORT INFORMATION
  Report Type: 
  Country: None (occurrence: None)
  Receive Date: 20111018
  Receipt Date: 20111014
  Transmission Date: 20120403
  Serious: Yes (Other)
  Sender: FDA-Public Use
  Company Number: US-PFIZER INC-2011246748

PATIENT
  Sex: Female
  Weight: 49.433 kg

DRUGS (4)
  1. TYLENOL-500 [Concomitant]
     Indication: ARTHRITIS
     Dosage: UNK
  2. PREPARATION H MAXIMUM STRENGTH [Suspect]
     Indication: HAEMORRHOIDS
     Dosage: UNK, AS NEEDED
     Dates: start: 20111001, end: 20111013
  3. CELEBREX [Concomitant]
     Indication: ARTHRITIS
     Dosage: UNK
  4. ALOE BARBADENSIS [Suspect]
     Indication: HAEMORRHOIDS
     Dosage: UNK

REACTIONS (1)
  - THERMAL BURN [None]
